FAERS Safety Report 24271738 (Version 1)
Quarter: 2024Q3

REPORT INFORMATION
  Report Type: Spontaneous
  Country: US (occurrence: US)
  Receive Date: 20240902
  Receipt Date: 20240902
  Transmission Date: 20241017
  Serious: No
  Sender: AUROBINDO
  Company Number: US-AUROBINDO-AUR-APL-2024-012355

PATIENT
  Age: 64 Year
  Sex: Female

DRUGS (3)
  1. ROSUVASTATIN CALCIUM [Suspect]
     Active Substance: ROSUVASTATIN CALCIUM
     Indication: Cardiac disorder
     Dosage: 1 DOSAGE FORM, ONCE A DAY (06 DOSES)
     Route: 048
     Dates: start: 20240213, end: 20240219
  2. ROSUVASTATIN CALCIUM [Suspect]
     Active Substance: ROSUVASTATIN CALCIUM
     Indication: Low density lipoprotein
  3. SYNTHROID [Concomitant]
     Active Substance: LEVOTHYROXINE SODIUM
     Indication: Hypothyroidism
     Dosage: 0.88 MILLIGRAM
     Route: 065

REACTIONS (5)
  - Myalgia [Recovering/Resolving]
  - Rash [Recovering/Resolving]
  - Urticaria [Recovering/Resolving]
  - Hypersensitivity [Recovering/Resolving]
  - Hordeolum [Recovered/Resolved]

NARRATIVE: CASE EVENT DATE: 20240219
